FAERS Safety Report 10904660 (Version 1)
Quarter: 2015Q1

REPORT INFORMATION
  Report Type: Spontaneous
  Country: JP (occurrence: JP)
  Receive Date: 20150311
  Receipt Date: 20150311
  Transmission Date: 20150721
  Serious: Yes (Other)
  Sender: FDA-Public Use
  Company Number: PHHY2015JP026939

PATIENT
  Age: 55 Year
  Sex: Female

DRUGS (8)
  1. CARBOPLATIN. [Suspect]
     Active Substance: CARBOPLATIN
     Indication: PINEAL PARENCHYMAL NEOPLASM MALIGNANT
     Dosage: 110 MG/M2, ON DAY 1
     Route: 065
  2. VINCRISTINE [Suspect]
     Active Substance: VINCRISTINE
     Indication: PINEAL PARENCHYMAL NEOPLASM MALIGNANT
     Dosage: 0.6 MG/M2, ON DAY 1
     Route: 065
  3. INTERFERON BETA NOS [Suspect]
     Active Substance: INTERFERON BETA
     Indication: PINEAL PARENCHYMAL NEOPLASM MALIGNANT
     Dosage: 3000000 IU, ON DAY 1
     Route: 065
  4. NIMUSTINE [Suspect]
     Active Substance: NIMUSTINE
     Indication: PINEAL PARENCHYMAL NEOPLASM MALIGNANT
     Dosage: 60 MG/M2, ON DAY 1
     Route: 065
  5. INTERFERON BETA NOS [Suspect]
     Active Substance: INTERFERON BETA
     Dosage: 3000000 IU, ON DAY 15
     Route: 065
  6. VINCRISTINE [Suspect]
     Active Substance: VINCRISTINE
     Dosage: 0.6 MG/M2, ON DAY 8
     Route: 065
  7. VINCRISTINE [Suspect]
     Active Substance: VINCRISTINE
     Dosage: 0.6 MG/M2, ON DAY 15
     Route: 065
  8. INTERFERON BETA NOS [Suspect]
     Active Substance: INTERFERON BETA
     Dosage: 3000000 IU, ON DAY 8
     Route: 065

REACTIONS (2)
  - White matter lesion [Unknown]
  - Sepsis [Unknown]
